FAERS Safety Report 25919961 (Version 2)
Quarter: 2025Q4

REPORT INFORMATION
  Report Type: Report from Study
  Country: EG (occurrence: EG)
  Receive Date: 20251014
  Receipt Date: 20251023
  Transmission Date: 20260118
  Serious: Yes (Other)
  Sender: NOVARTIS
  Company Number: EG-002147023-NVSC2025EG158556

PATIENT
  Sex: Female
  Weight: 100 kg

DRUGS (4)
  1. KISQALI [Suspect]
     Active Substance: RIBOCICLIB SUCCINATE
     Indication: Breast cancer metastatic
     Dosage: 2 DOSAGE FORM, QD (FOR 21 DAYS AND WEEK OFF)
     Route: 048
  2. KISQALI [Suspect]
     Active Substance: RIBOCICLIB SUCCINATE
     Dosage: 200 MG, OTHER (3 TABLETS ONCE DAILY FOR 21 DAYS AND WEEK OFF)
     Route: 048
  3. KISQALI [Suspect]
     Active Substance: RIBOCICLIB SUCCINATE
     Dosage: 200 MG, OTHER (2 TABLETS ONCE DAILY FOR 21 DAYS AND 7 DAYS OFF)
     Route: 048
  4. KISQALI [Suspect]
     Active Substance: RIBOCICLIB SUCCINATE
     Dosage: 2 DOSAGE FORM, QD, FOR 3 WEEKS AND 1 WEEK OF
     Route: 048

REACTIONS (2)
  - Decreased immune responsiveness [Recovering/Resolving]
  - Off label use [Unknown]
